FAERS Safety Report 6803304-8 (Version None)
Quarter: 2010Q2

REPORT INFORMATION
  Report Type: 
  Country: None (occurrence: None)
  Receive Date: 20100628
  Receipt Date: 20100616
  Transmission Date: 20101027
  Serious: Yes (Hospitalization)
  Sender: FDA-Public Use
  Company Number: IT-PFIZER INC-2010075188

PATIENT
  Age: 67 Year
  Sex: Male

DRUGS (6)
  1. ZYVOXID [Suspect]
     Indication: FEBRILE NEUTROPENIA
     Dosage: 1200 MG DAILY
     Route: 042
     Dates: start: 20100514, end: 20100517
  2. LEVOXACIN [Suspect]
     Indication: FEBRILE NEUTROPENIA
     Dosage: 1000 MG DAILY
     Route: 048
     Dates: start: 20100514, end: 20100517
  3. ALLOPURINOL [Concomitant]
     Route: 048
  4. POSACONAZOLE [Concomitant]
     Route: 048
  5. LOSEC I.V. [Concomitant]
     Route: 042
  6. PLASIL [Concomitant]
     Route: 042

REACTIONS (3)
  - AGITATION [None]
  - CONFUSIONAL STATE [None]
  - TREMOR [None]
